FAERS Safety Report 11127245 (Version 1)
Quarter: 2015Q2

REPORT INFORMATION
  Report Type: Spontaneous
  Country: US (occurrence: None)
  Receive Date: 20150520
  Receipt Date: 20150520
  Transmission Date: 20150821
  Serious: No
  Sender: FDA-Public Use
  Company Number: None

PATIENT

DRUGS (7)
  1. COQ10 [Concomitant]
     Active Substance: UBIDECARENONE
  2. VITAMIN B12 [Concomitant]
     Active Substance: CYANOCOBALAMIN
  3. AIR BOURN [Concomitant]
  4. D3 [Concomitant]
     Active Substance: 25-HYDROXYCHOLECALCIFEROL, 5-TRANS-
  5. PROBIOTIC [Concomitant]
     Active Substance: PROBIOTICS NOS
  6. AZITHROMYCIN [Suspect]
     Active Substance: AZITHROMYCIN ANHYDROUS
     Indication: NASOPHARYNGITIS
     Dosage: 2 TO START - THEN 1 MOUTH
     Route: 048
     Dates: start: 20150402, end: 20150406
  7. IMMUNE BOOSTER [Concomitant]

REACTIONS (3)
  - Deafness [None]
  - Diarrhoea [None]
  - Dysuria [None]

NARRATIVE: CASE EVENT DATE: 20150406
